FAERS Safety Report 16355658 (Version 1)
Quarter: 2019Q2

REPORT INFORMATION
  Report Type: Spontaneous
  Country: US (occurrence: US)
  Receive Date: 20190525
  Receipt Date: 20190525
  Transmission Date: 20190711
  Serious: No
  Sender: FDA-Public Use
  Company Number: US-TEVA-2019-US-1045110

PATIENT
  Sex: Female

DRUGS (1)
  1. LISINOPRIL TABLET [Suspect]
     Active Substance: LISINOPRIL
     Indication: HYPERTENSION
     Dosage: TAKE 1/2 TABLET DAILY
     Route: 065
     Dates: start: 201904

REACTIONS (3)
  - Abnormal behaviour [Recovering/Resolving]
  - Head discomfort [Recovering/Resolving]
  - Feeling abnormal [Recovering/Resolving]

NARRATIVE: CASE EVENT DATE: 201904
